FAERS Safety Report 6518077-6 (Version None)
Quarter: 2009Q4

REPORT INFORMATION
  Report Type: 
  Country: None (occurrence: None)
  Receive Date: 20091218
  Receipt Date: 20091208
  Transmission Date: 20100525
  Serious: Yes (Hospitalization, Other)
  Sender: FDA-Public Use
  Company Number: 091210-0001215

PATIENT
  Age: 15 Year
  Sex: Female
  Weight: 42 kg

DRUGS (4)
  1. COSMEGEN [Suspect]
     Indication: DRUG USE FOR UNKNOWN INDICATION
     Dosage: 0.63 MG;QD;IV
     Route: 042
     Dates: start: 20091109
  2. ETOPOSIDE [Suspect]
     Indication: DRUG USE FOR UNKNOWN INDICATION
     Dosage: 150 MG;QD;IV
     Route: 042
     Dates: start: 20091109
  3. IFOMIDE (IFOSFAMIDE) [Suspect]
     Indication: DRUG USE FOR UNKNOWN INDICATION
     Dosage: 2400 MG;QD;IV
     Route: 042
     Dates: start: 20091109
  4. ONCOVIN [Suspect]
     Indication: DRUG USE FOR UNKNOWN INDICATION
     Dosage: 2 MG;QW;IV
     Route: 042
     Dates: start: 20091109

REACTIONS (3)
  - ANURIA [None]
  - DIALYSIS [None]
  - RHABDOMYOLYSIS [None]
